FAERS Safety Report 9657721 (Version 2)
Quarter: 2014Q1

REPORT INFORMATION
  Report Type: Report from Study
  Country: BR (occurrence: BR)
  Receive Date: 20131030
  Receipt Date: 20140106
  Transmission Date: 20141002
  Serious: Yes (Hospitalization, Other)
  Sender: FDA-Public Use
  Company Number: PHHY2013BR121825

PATIENT
  Age: 68 Year
  Sex: Female

DRUGS (9)
  1. DIOVAN [Suspect]
     Indication: HYPERTENSION
     Dosage: 1 DF (80MG VALS), DAILY
     Route: 048
     Dates: end: 20131026
  2. ATENOLOL [Suspect]
     Indication: HEART RATE DECREASED
     Dosage: 2 DF (25 MG), DAILY
     Route: 048
  3. REMICADE [Concomitant]
     Indication: RHEUMATOID ARTHRITIS
     Dosage: 1 APPLICATION EVERY 8 WEEKS
  4. METHOTREXATE [Concomitant]
     Indication: RHEUMATOID ARTHRITIS
     Dosage: 8 DF, BID (JUST ON SATURDAY)
  5. ARTROLIVE [Concomitant]
     Indication: CHONDROPATHY
     Dosage: 3 DF, DAILY
  6. DEFLAZACORT [Concomitant]
     Indication: RHEUMATOID ARTHRITIS
     Dosage: 6 MG, QD
  7. DEPURA [Concomitant]
     Indication: BONE DISORDER
  8. OMEPRAZOLE [Concomitant]
     Indication: ABDOMINAL DISCOMFORT
  9. AAS [Concomitant]
     Indication: ANTICOAGULANT THERAPY
     Dosage: 100 MG, UNK

REACTIONS (7)
  - Urinary tract infection [Recovering/Resolving]
  - Lung infection [Recovering/Resolving]
  - Pneumonia [Recovering/Resolving]
  - Blood pressure increased [Recovering/Resolving]
  - Headache [Recovering/Resolving]
  - Syncope [Recovering/Resolving]
  - Blood pressure decreased [Recovering/Resolving]
